FAERS Safety Report 8161161-4 (Version None)
Quarter: 2012Q1

REPORT INFORMATION
  Report Type: 
  Country: None (occurrence: None)
  Receive Date: 20120224
  Receipt Date: 20120222
  Transmission Date: 20120608
  Serious: Yes (Other)
  Sender: FDA-Public Use
  Company Number: US-PFIZER INC-2012047442

PATIENT
  Sex: Female
  Weight: 52 kg

DRUGS (2)
  1. EFFEXOR XR [Suspect]
     Indication: DEPRESSION
     Dosage: 37.5 MG, UNK
     Route: 048
  2. EFFEXOR XR [Suspect]
     Indication: PAIN
     Dosage: 150 MG, UNK
     Route: 048

REACTIONS (4)
  - ANTINUCLEAR ANTIBODY POSITIVE [None]
  - WEIGHT INCREASED [None]
  - CATARACT [None]
  - PAIN [None]
